FAERS Safety Report 12634104 (Version 1)
Quarter: 2016Q3

REPORT INFORMATION
  Report Type: Spontaneous
  Country: GB (occurrence: GB)
  Receive Date: 20160808
  Receipt Date: 20160808
  Transmission Date: 20161109
  Serious: Yes (Life-Threatening, Hospitalization, Disabling, Other)
  Sender: FDA-Public Use
  Company Number: GB-MYLANLABS-2016M1031629

PATIENT

DRUGS (6)
  1. ZOPICLONE [Concomitant]
     Active Substance: ZOPICLONE
     Dosage: UNK
  2. LISINOPRIL. [Concomitant]
     Active Substance: LISINOPRIL
     Dosage: UNK
  3. TRAMADOL. [Concomitant]
     Active Substance: TRAMADOL
     Dosage: UNK
  4. AMLODIPINE [Concomitant]
     Active Substance: AMLODIPINE BESYLATE
     Dosage: UNK
  5. OLANZAPINE. [Suspect]
     Active Substance: OLANZAPINE
     Indication: MENTAL DISORDER
     Dosage: 5 MG, UNK
     Route: 048
     Dates: start: 20160712, end: 20160719
  6. INDAPAMIDE. [Concomitant]
     Active Substance: INDAPAMIDE
     Dosage: UNK

REACTIONS (12)
  - Malaise [Unknown]
  - Neuroleptic malignant syndrome [Not Recovered/Not Resolved]
  - Electrocardiogram QT prolonged [Unknown]
  - Diarrhoea [Unknown]
  - Renal failure [Unknown]
  - Hyperosmolar hyperglycaemic state [Not Recovered/Not Resolved]
  - Polydipsia [Unknown]
  - Blood triglycerides increased [Unknown]
  - Polyuria [Unknown]
  - Tachypnoea [Unknown]
  - Hypotension [Unknown]
  - Vomiting [Unknown]

NARRATIVE: CASE EVENT DATE: 20160720
